FAERS Safety Report 7411068-2 (Version None)
Quarter: 2011Q2

REPORT INFORMATION
  Report Type: 
  Country: None (occurrence: None)
  Receive Date: 20110413
  Receipt Date: 20110405
  Transmission Date: 20111010
  Serious: Yes (Other)
  Sender: FDA-Public Use
  Company Number: US-ASTELLAS-2011US000276

PATIENT

DRUGS (4)
  1. ANTIHYPERTENSIVES [Concomitant]
     Indication: HYPERTENSION
     Dosage: UNK
     Route: 065
  2. DETROL [Concomitant]
     Indication: HYPERTONIC BLADDER
     Dosage: UNK
     Route: 065
  3. VESICARE [Suspect]
     Indication: HYPERTONIC BLADDER
     Dosage: UNK UNK, UNKNOWN/D
     Route: 048
     Dates: start: 20101212, end: 20110116
  4. SYNTHROID [Concomitant]
     Indication: PRODUCT USED FOR UNKNOWN INDICATION
     Dosage: UNK
     Route: 065

REACTIONS (9)
  - ADVERSE DRUG REACTION [None]
  - EYE DISCHARGE [None]
  - DRY MOUTH [None]
  - PERIORBITAL DISORDER [None]
  - DRY EYE [None]
  - VISUAL IMPAIRMENT [None]
  - FEAR [None]
  - EYE INFECTION [None]
  - PHOTOPHOBIA [None]
